FAERS Safety Report 9028644 (Version 1)
Quarter: 2013Q1

REPORT INFORMATION
  Report Type: Spontaneous
  Country: US (occurrence: US)
  Receive Date: 20130124
  Receipt Date: 20130124
  Transmission Date: 20140127
  Serious: Yes (Other)
  Sender: FDA-Public Use
  Company Number: US-BAYER-2013-005644

PATIENT
  Age: 92 Year
  Sex: Female
  Weight: 43.99 kg

DRUGS (3)
  1. BAYER ASPIRIN REGIMEN ADULT LOW STRENGTH [Suspect]
     Indication: ISCHAEMIC HEART DISEASE PROPHYLAXIS
     Dosage: 1 DF, PRN
     Dates: start: 20121111
  2. NORVASC [Concomitant]
  3. TOPROL XL [Concomitant]

REACTIONS (1)
  - Rectal haemorrhage [Recovered/Resolved]
